FAERS Safety Report 9269677 (Version 2)
Quarter: 2014Q1

REPORT INFORMATION
  Report Type: Spontaneous
  Country: US (occurrence: US)
  Receive Date: 20130503
  Receipt Date: 20140121
  Transmission Date: 20141002
  Serious: Yes (Hospitalization)
  Sender: FDA-Public Use
  Company Number: US-BAYER-2013-053767

PATIENT
  Age: 26 Year
  Sex: Female

DRUGS (13)
  1. BEYAZ [Suspect]
  2. YAZ [Suspect]
  3. PROZAC [Concomitant]
  4. VENTOLIN [Concomitant]
  5. PREDNISONE [Concomitant]
  6. NAPROXEN [Concomitant]
  7. TAMIFLU [Concomitant]
  8. OXYGEN [Concomitant]
     Indication: ASTHMA
  9. SOLU-MEDROL [Concomitant]
     Indication: ASTHMA
  10. CEFTRIAXONE [Concomitant]
  11. AZITHROMYCIN [Concomitant]
  12. MORFINE [Concomitant]
  13. OXYCODONE [Concomitant]
     Route: 048

REACTIONS (1)
  - Pulmonary embolism [None]
